FAERS Safety Report 8303580-9 (Version None)
Quarter: 2012Q2

REPORT INFORMATION
  Report Type: 
  Country: None (occurrence: None)
  Receive Date: 20120423
  Receipt Date: 20120420
  Transmission Date: 20120825
  Serious: No
  Sender: FDA-Public Use
  Company Number: US-PFIZER INC-2012098521

PATIENT
  Sex: Male
  Weight: 97.506 kg

DRUGS (5)
  1. METOPROLOL SUCCINATE [Concomitant]
     Dosage: 100 MG, TWICE A DAY
  2. SOTALOL [Concomitant]
     Dosage: 80 MG, TWICE A DAY
  3. LOSARTAN POTASSIUM [Concomitant]
     Dosage: 25 MG, DAILY
  4. ALDACTONE [Suspect]
     Indication: BLOOD PRESSURE ABNORMAL
     Dosage: 25 MG, DAILY
     Dates: start: 20110701
  5. PRADAXA [Concomitant]
     Indication: PROPHYLAXIS
     Dosage: 150 MG, TWICE A DAY
     Dates: start: 20110101

REACTIONS (1)
  - NIPPLE PAIN [None]
